FAERS Safety Report 7986040-4 (Version None)
Quarter: 2011Q4

REPORT INFORMATION
  Report Type: 
  Country: None (occurrence: None)
  Receive Date: 20111216
  Receipt Date: 20110106
  Transmission Date: 20120403
  Serious: No
  Sender: FDA-Public Use
  Company Number: US-BRISTOL-MYERS SQUIBB COMPANY-15474885

PATIENT
  Age: 3 Decade
  Sex: Female

DRUGS (4)
  1. ABILIFY [Suspect]
     Dates: end: 20100101
  2. KLONOPIN [Concomitant]
  3. LAMICTAL [Concomitant]
  4. ADDERALL 5 [Concomitant]

REACTIONS (1)
  - DYSTONIA [None]
